FAERS Safety Report 9355523 (Version 1)
Quarter: 2013Q2

REPORT INFORMATION
  Report Type: Spontaneous
  Country: None (occurrence: GB)
  Receive Date: 20130619
  Receipt Date: 20130619
  Transmission Date: 20140414
  Serious: Yes (Other)
  Sender: FDA-Public Use
  Company Number: GB-COVIDIEN/TYCO HEALTHCARE/MALLINCKRODT-T201303363

PATIENT
  Age: 26 Year
  Sex: Female

DRUGS (30)
  1. PENNSAID TOPICAL [Suspect]
     Indication: PAIN
     Dosage: UNK
     Route: 065
  2. PENNSAID TOPICAL [Suspect]
     Indication: HYPERMOBILITY SYNDROME
  3. PENNSAID TOPICAL [Suspect]
     Indication: OSTEOARTHRITIS
  4. PENNSAID TOPICAL [Suspect]
     Indication: OSTEOPOROSIS
  5. PENNSAID TOPICAL [Suspect]
     Indication: MYALGIA
  6. PENNSAID TOPICAL [Suspect]
     Indication: RHEUMATOID ARTHRITIS
  7. CO-CODAMOL [Suspect]
     Indication: PAIN
     Dosage: UNK
     Route: 065
  8. CO-CODAMOL [Suspect]
     Indication: HYPERMOBILITY SYNDROME
  9. CO-CODAMOL [Suspect]
     Indication: OSTEOARTHRITIS
  10. CO-CODAMOL [Suspect]
     Indication: OSTEOPOROSIS
  11. CO-CODAMOL [Suspect]
     Indication: MYALGIA
  12. CO-CODAMOL [Suspect]
     Indication: RHEUMATOID ARTHRITIS
  13. LEFLUNOMIDE [Suspect]
     Indication: PAIN
     Dosage: UNK
     Route: 065
  14. LEFLUNOMIDE [Suspect]
     Indication: HYPERMOBILITY SYNDROME
  15. LEFLUNOMIDE [Suspect]
     Indication: OSTEOARTHRITIS
  16. LEFLUNOMIDE [Suspect]
     Indication: MYALGIA
  17. LEFLUNOMIDE [Suspect]
     Indication: RHEUMATOID ARTHRITIS
  18. LEFLUNOMIDE [Suspect]
     Indication: OSTEOPOROSIS
  19. NAPROXEN [Suspect]
     Indication: PAIN
     Dosage: UNK
     Route: 065
  20. NAPROXEN [Suspect]
     Indication: HYPERMOBILITY SYNDROME
  21. NAPROXEN [Suspect]
     Indication: OSTEOARTHRITIS
  22. NAPROXEN [Suspect]
     Indication: OSTEOPOROSIS
  23. NAPROXEN [Suspect]
     Indication: MYALGIA
  24. NAPROXEN [Suspect]
     Indication: RHEUMATOID ARTHRITIS
  25. TRAMADOL [Suspect]
     Indication: PAIN
     Dosage: UNK
     Route: 065
  26. TRAMADOL [Suspect]
     Indication: HYPERMOBILITY SYNDROME
  27. TRAMADOL [Suspect]
     Indication: OSTEOARTHRITIS
  28. TRAMADOL [Suspect]
     Indication: OSTEOPOROSIS
  29. TRAMADOL [Suspect]
     Indication: MYALGIA
  30. TRAMADOL [Suspect]
     Indication: RHEUMATOID ARTHRITIS

REACTIONS (2)
  - Suicidal ideation [Unknown]
  - Drug ineffective [Unknown]
